FAERS Safety Report 12173887 (Version 6)
Quarter: 2016Q2

REPORT INFORMATION
  Report Type: Spontaneous
  Country: US (occurrence: US)
  Receive Date: 20160314
  Receipt Date: 20160525
  Transmission Date: 20160815
  Serious: Yes (Life-Threatening, Hospitalization, Other)
  Sender: FDA-Public Use
  Company Number: PHEH2016US005116

PATIENT
  Sex: Female
  Weight: 59 kg

DRUGS (11)
  1. VIMPAT [Suspect]
     Active Substance: LACOSAMIDE
     Indication: SEIZURE
     Route: 065
  2. THORAZINE [Concomitant]
     Active Substance: CHLORPROMAZINE
     Indication: PRODUCT USED FOR UNKNOWN INDICATION
     Route: 065
  3. LAMICTAL [Suspect]
     Active Substance: LAMOTRIGINE
     Indication: SEIZURE
     Dosage: 800 MG, UNK
     Route: 048
     Dates: start: 2010, end: 2011
  4. NITROGLYCERIN. [Concomitant]
     Active Substance: NITROGLYCERIN
     Indication: PRODUCT USED FOR UNKNOWN INDICATION
     Route: 065
  5. ASPIRIN. [Concomitant]
     Active Substance: ASPIRIN
     Indication: PRODUCT USED FOR UNKNOWN INDICATION
     Route: 065
  6. DEPAKOTE [Suspect]
     Active Substance: DIVALPROEX SODIUM
     Indication: SEIZURE
     Route: 065
  7. SEROQUEL [Suspect]
     Active Substance: QUETIAPINE FUMARATE
     Indication: DEPRESSION
     Route: 065
  8. NEURONTIN [Suspect]
     Active Substance: GABAPENTIN
     Indication: SEIZURE
     Dosage: UNK
     Route: 048
     Dates: end: 2012
  9. LAMICTAL [Suspect]
     Active Substance: LAMOTRIGINE
     Dosage: 1200 MG, UNK
     Route: 048
     Dates: start: 2010, end: 2011
  10. TRILEPTAL [Suspect]
     Active Substance: OXCARBAZEPINE
     Indication: SEIZURE
     Dosage: UNK
     Route: 048
     Dates: start: 2011, end: 2012
  11. ZONISAMIDE. [Suspect]
     Active Substance: ZONISAMIDE
     Indication: SEIZURE
     Route: 065

REACTIONS (43)
  - Haemorrhage [Not Recovered/Not Resolved]
  - Vision blurred [Unknown]
  - Fall [Not Recovered/Not Resolved]
  - Diplopia [Not Recovered/Not Resolved]
  - Chest pain [Not Recovered/Not Resolved]
  - Psychotic disorder [Unknown]
  - Agitation [Unknown]
  - Joint injury [Unknown]
  - Hyperhidrosis [Not Recovered/Not Resolved]
  - Meniscus injury [Unknown]
  - Disturbance in attention [Unknown]
  - Alopecia [Not Recovered/Not Resolved]
  - Feeling abnormal [Unknown]
  - Mania [Unknown]
  - Strabismus [Not Recovered/Not Resolved]
  - Anaemia [Unknown]
  - Emotional distress [Unknown]
  - Myocardial infarction [Not Recovered/Not Resolved]
  - Loss of consciousness [Unknown]
  - Dysstasia [Unknown]
  - Hostility [Unknown]
  - Asthenia [Not Recovered/Not Resolved]
  - Bipolar disorder [Unknown]
  - Balance disorder [Unknown]
  - Cognitive disorder [Recovering/Resolving]
  - Increased tendency to bruise [Unknown]
  - Vomiting [Not Recovered/Not Resolved]
  - Seizure [Not Recovered/Not Resolved]
  - Urine abnormality [Unknown]
  - Logorrhoea [Unknown]
  - Menopause [Not Recovered/Not Resolved]
  - General physical condition abnormal [Unknown]
  - Laceration [Unknown]
  - Drug hypersensitivity [Unknown]
  - Amnesia [Unknown]
  - Constipation [Unknown]
  - Drug ineffective [Unknown]
  - Irritability [Unknown]
  - Pallor [Not Recovered/Not Resolved]
  - Bladder pain [Unknown]
  - Micturition urgency [Unknown]
  - Pollakiuria [Not Recovered/Not Resolved]
  - Urinary tract disorder [Unknown]

NARRATIVE: CASE EVENT DATE: 2010
